FAERS Safety Report 7940072-0 (Version None)
Quarter: 2011Q4

REPORT INFORMATION
  Report Type: 
  Country: None (occurrence: None)
  Receive Date: 20111125
  Receipt Date: 20111123
  Transmission Date: 20120403
  Serious: Yes (Death, Hospitalization, Other)
  Sender: FDA-Public Use
  Company Number: PHHY2011CA11600

PATIENT
  Sex: Female

DRUGS (2)
  1. SANDOSTATIN LAR [Suspect]
     Dosage: 20 MG, QMO
     Route: 030
     Dates: end: 20110210
  2. SANDOSTATIN LAR [Suspect]
     Indication: OVARIAN CANCER
     Dosage: 20 MG, QMO
     Route: 030
     Dates: start: 20110113

REACTIONS (7)
  - DEATH [None]
  - PNEUMONIA [None]
  - DIARRHOEA [None]
  - THIRST [None]
  - FLATULENCE [None]
  - NEOPLASM RECURRENCE [None]
  - FATIGUE [None]
